FAERS Safety Report 6717721-8 (Version None)
Quarter: 2010Q2

REPORT INFORMATION
  Report Type: 
  Country: None (occurrence: None)
  Receive Date: 20100510
  Receipt Date: 20100429
  Transmission Date: 20101027
  Serious: Yes (Hospitalization, Other)
  Sender: FDA-Public Use
  Company Number: US-JNJFOC-20100500602

PATIENT
  Sex: Female
  Weight: 57.5 kg

DRUGS (5)
  1. REMICADE [Suspect]
     Indication: CROHN'S DISEASE
     Route: 042
     Dates: start: 20080310
  2. REMICADE [Suspect]
     Route: 042
     Dates: start: 20080310
  3. PREDNISONE [Concomitant]
  4. METRONIDAZOLE [Concomitant]
  5. HUMIRA [Concomitant]

REACTIONS (1)
  - MASS [None]
